FAERS Safety Report 9171663 (Version 1)
Quarter: 2013Q1

REPORT INFORMATION
  Report Type: Spontaneous
  Country: US (occurrence: None)
  Receive Date: 20130313
  Receipt Date: 20130313
  Transmission Date: 20140127
  Serious: Yes (Life-Threatening, Hospitalization)
  Sender: FDA-Public Use
  Company Number: UTC-023591

PATIENT
  Age: 65 Year
  Sex: Female

DRUGS (14)
  1. TYVASO [Suspect]
     Indication: PULMONARY ARTERIAL HYPERTENSION
     Dosage: 96 MCG 24 MCG, 4 IN 1 D, INHALATION
     Route: 055
     Dates: start: 20120907, end: 20120911
  2. TYVASO [Suspect]
     Indication: COR PULMONALE CHRONIC
     Dosage: 96 MCG 24 MCG, 4 IN 1 D, INHALATION
     Route: 055
     Dates: start: 20120907, end: 20120911
  3. CLINDAMYCIN [Concomitant]
  4. CRESTOR ROSUVASTATIN [Concomitant]
  5. HYDRALAZINE [Concomitant]
  6. NORVASC AMLODIPINE BESILATE [Concomitant]
  7. LOSARTAN [Concomitant]
  8. HYZAAR [Concomitant]
  9. DIGOXIN [Concomitant]
  10. FUROSEMIDE [Concomitant]
  11. ATROVENT HFA IPRATROPIUM BROMIDE [Concomitant]
  12. SYMBICORT BUDESONIDE W/FORMOTEROL FUMARATE [Concomitant]
  13. REVATIO SILDENAFIL CITRATE [Concomitant]
  14. VICODIN [Concomitant]

REACTIONS (6)
  - Burning sensation [None]
  - Loss of consciousness [None]
  - Cardiac failure congestive [None]
  - Bronchitis [None]
  - Chest pain [None]
  - Dyspnoea [None]
